FAERS Safety Report 6043530-1 (Version None)
Quarter: 2009Q1

REPORT INFORMATION
  Report Type: 
  Country: None (occurrence: None)
  Receive Date: 20090114
  Receipt Date: 20090114
  Transmission Date: 20090719
  Serious: Yes (Hospitalization)
  Sender: FDA-Public Use
  Company Number: None

PATIENT
  Age: 54 Year
  Sex: Female
  Weight: 113 kg

DRUGS (8)
  1. LITHIUM CARBONATE [Suspect]
     Indication: BIPOLAR DISORDER
     Dosage: 450 MG BID PO
     Route: 048
  2. METFORMIN HCL [Suspect]
     Indication: DIABETES MELLITUS
     Dosage: 500 MG DAILY PO
     Route: 048
  3. TRIMETHOPRIM/SULFAMETHOXASOLE [Concomitant]
  4. MIRTAZAPINE [Concomitant]
  5. QUETIAPINE FUMARATE [Concomitant]
  6. LEVOTHYROXINE [Concomitant]
  7. LISINOPRIL AND HYDROCHLOROTHIAZIDE [Concomitant]
  8. METFORMIN [Concomitant]

REACTIONS (11)
  - ANOREXIA [None]
  - DEHYDRATION [None]
  - DIARRHOEA [None]
  - HAEMODIALYSIS [None]
  - HYPERKALAEMIA [None]
  - HYPOTENSION [None]
  - NAUSEA [None]
  - NEPHROPATHY TOXIC [None]
  - RENAL FAILURE ACUTE [None]
  - THERAPEUTIC AGENT TOXICITY [None]
  - TREMOR [None]
